FAERS Safety Report 6395799-1 (Version None)
Quarter: 2009Q4

REPORT INFORMATION
  Report Type: 
  Country: None (occurrence: None)
  Receive Date: 20091009
  Receipt Date: 20090930
  Transmission Date: 20100525
  Serious: Yes (Other)
  Sender: FDA-Public Use
  Company Number: US-ASTRAZENECA-2009UW15018

PATIENT
  Age: 5 Year
  Sex: Male
  Weight: 17.2 kg

DRUGS (2)
  1. SEROQUEL XR [Suspect]
     Route: 048
  2. SEROQUEL XR [Suspect]
     Route: 048

REACTIONS (7)
  - AGITATION [None]
  - ANGER [None]
  - DRUG CLEARANCE INCREASED [None]
  - DRUG EFFECT DECREASED [None]
  - IMPULSE-CONTROL DISORDER [None]
  - INITIAL INSOMNIA [None]
  - IRRITABILITY [None]
